FAERS Safety Report 9937656 (Version 1)
Quarter: 2014Q1

REPORT INFORMATION
  Report Type: Spontaneous
  Country: US (occurrence: US)
  Receive Date: 20140303
  Receipt Date: 20140303
  Transmission Date: 20141002
  Serious: No
  Sender: FDA-Public Use
  Company Number: US-BIOGENIDEC-2014BI014666

PATIENT
  Age: 42 Year
  Sex: Female

DRUGS (12)
  1. TECFIDERA [Suspect]
     Indication: MULTIPLE SCLEROSIS
     Route: 048
     Dates: start: 201310
  2. NEXIUM [Concomitant]
  3. LEXAPRO [Concomitant]
  4. PEPTO-BISMOL [Concomitant]
  5. XANAX [Concomitant]
  6. LYRICA [Concomitant]
  7. ACYCLOVIR [Concomitant]
  8. TIZANIDINE [Concomitant]
  9. AMITRIPTYLINE HCL [Concomitant]
  10. HYDROCODONE-ACETAMINOPHEN [Concomitant]
  11. VITAMIN B-12 [Concomitant]
  12. VITAMIN D3 [Concomitant]

REACTIONS (7)
  - Weight decreased [Unknown]
  - Urticaria [Unknown]
  - Flushing [Unknown]
  - Erythema [Unknown]
  - Pruritus [Unknown]
  - Nausea [Unknown]
  - Vomiting [Unknown]
